FAERS Safety Report 11225439 (Version 1)
Quarter: 2015Q2

REPORT INFORMATION
  Report Type: Spontaneous
  Country: US (occurrence: None)
  Receive Date: 20150626
  Receipt Date: 20150626
  Transmission Date: 20150821
  Serious: Yes (Other)
  Sender: FDA-Public Use
  Company Number: None

PATIENT
  Age: 54 Year
  Sex: Female
  Weight: 86.4 kg

DRUGS (1)
  1. LEVAQUIN GENERIC LEVOFLOXACIN 750 MG TABLETS JOHNSON+JOHNSON [Suspect]
     Active Substance: LEVOFLOXACIN
     Route: 048
     Dates: start: 20150604, end: 20150607

REACTIONS (5)
  - Acute sinusitis [None]
  - Peripheral swelling [None]
  - Pain [None]
  - Arthritis [None]
  - Dizziness [None]

NARRATIVE: CASE EVENT DATE: 20150604
